FAERS Safety Report 7325388 (Version 12)
Quarter: 2015Q4

REPORT INFORMATION
  Report Type: Spontaneous
  Country: US (occurrence: US)
  Receive Date: 20100319
  Receipt Date: 20151023
  Transmission Date: 20160305
  Serious: Yes (Other)
  Sender: FDA-Public Use
  Company Number: US-BAYER-201016613NA

PATIENT
  Age: 51 Year
  Sex: Female
  Weight: 94 kg

DRUGS (20)
  1. OMNISCAN [Suspect]
     Active Substance: GADODIAMIDE
     Indication: IMAGING PROCEDURE
  2. PROHANCE [Suspect]
     Active Substance: GADOTERIDOL
     Indication: IMAGING PROCEDURE
  3. RENAL [VITAMINS NOS] [Concomitant]
     Indication: VITAMIN SUPPLEMENTATION
     Route: 048
  4. RENAGEL [Concomitant]
     Active Substance: SEVELAMER HYDROCHLORIDE
     Dates: start: 20021014
  5. OPTIMARK [Suspect]
     Active Substance: GADOVERSETAMIDE
     Indication: IMAGING PROCEDURE
  6. BABY ASA [Concomitant]
     Active Substance: ASPIRIN
  7. MAGNEVIST [Suspect]
     Active Substance: GADOPENTETATE DIMEGLUMINE
     Indication: HYPOAESTHESIA
  8. EPOGEN [Concomitant]
     Active Substance: ERYTHROPOIETIN
     Indication: ANAEMIA
     Dosage: AS NEEDED FOR DIALYSIS
  9. LIPITOR [Concomitant]
     Active Substance: ATORVASTATIN CALCIUM
  10. MULTIHANCE [Suspect]
     Active Substance: GADOBENATE DIMEGLUMINE
     Indication: IMAGING PROCEDURE
  11. SENSIPAR [Concomitant]
     Active Substance: CINACALCET HYDROCHLORIDE
     Route: 048
  12. EVISTA [RALOXIFENE HYDROCHLORIDE] [Concomitant]
  13. WARFARIN [Concomitant]
     Active Substance: WARFARIN
  14. IRON [IRON] [Concomitant]
     Active Substance: IRON
     Indication: ANAEMIA PROPHYLAXIS
  15. NEXIUM [Concomitant]
     Active Substance: ESOMEPRAZOLE MAGNESIUM
  16. TUMS [Concomitant]
     Active Substance: CALCIUM CARBONATE
  17. ANTIBIOTICS [Concomitant]
     Active Substance: UNSPECIFIED INGREDIENT
  18. MAGNEVIST [Suspect]
     Active Substance: GADOPENTETATE DIMEGLUMINE
     Indication: NUCLEAR MAGNETIC RESONANCE IMAGING BRAIN
     Dates: start: 20020403, end: 20020403
  19. PROCRIT [Concomitant]
     Active Substance: ERYTHROPOIETIN
     Dates: start: 20021015
  20. COUMADIN [Concomitant]
     Active Substance: WARFARIN SODIUM

REACTIONS (25)
  - Nephrogenic systemic fibrosis [Not Recovered/Not Resolved]
  - Skin disorder [Not Recovered/Not Resolved]
  - Oedema peripheral [Not Recovered/Not Resolved]
  - Dyspnoea [Not Recovered/Not Resolved]
  - Deformity [Not Recovered/Not Resolved]
  - Pain in extremity [Not Recovered/Not Resolved]
  - Muscle tightness [Not Recovered/Not Resolved]
  - Muscular weakness [Not Recovered/Not Resolved]
  - Skin hypertrophy [Not Recovered/Not Resolved]
  - Joint swelling [Not Recovered/Not Resolved]
  - Skin fibrosis [Not Recovered/Not Resolved]
  - Mobility decreased [Not Recovered/Not Resolved]
  - Skin induration [Not Recovered/Not Resolved]
  - Joint contracture [Not Recovered/Not Resolved]
  - Pain [Not Recovered/Not Resolved]
  - Depression [None]
  - Scar [Not Recovered/Not Resolved]
  - Musculoskeletal stiffness [Not Recovered/Not Resolved]
  - Oedema [Not Recovered/Not Resolved]
  - Muscle contracture [Not Recovered/Not Resolved]
  - Joint stiffness [Not Recovered/Not Resolved]
  - Anxiety [None]
  - Skin tightness [Not Recovered/Not Resolved]
  - Arthralgia [Not Recovered/Not Resolved]
  - Anhedonia [None]

NARRATIVE: CASE EVENT DATE: 20080624
